FAERS Safety Report 15401575 (Version 1)
Quarter: 2018Q3

REPORT INFORMATION
  Report Type: Spontaneous
  Country: US (occurrence: US)
  Receive Date: 20180919
  Receipt Date: 20180919
  Transmission Date: 20181010
  Serious: No
  Sender: FDA-Public Use
  Company Number: US-PFIZER INC-2018375888

PATIENT
  Age: 73 Year

DRUGS (1)
  1. PREMPRO [Suspect]
     Active Substance: ESTROGENS, CONJUGATED\MEDROXYPROGESTERONE ACETATE
     Dosage: UNK [ESTROGENS CONJUGATED 0.3 MG] [MEDROXYPROGESTERONE ACETATE 1.5 MG]

REACTIONS (1)
  - Hot flush [Unknown]
